FAERS Safety Report 10017584 (Version 2)
Quarter: 2014Q1

REPORT INFORMATION
  Report Type: Spontaneous
  Country: US (occurrence: US)
  Receive Date: 20140318
  Receipt Date: 20140318
  Transmission Date: 20141002
  Serious: No
  Sender: FDA-Public Use
  Company Number: US-BRISTOL-MYERS SQUIBB COMPANY-17365180

PATIENT
  Age: 72 Year
  Sex: Male

DRUGS (3)
  1. ERBITUX [Suspect]
     Indication: COLORECTAL CANCER
     Dosage: TWO TREATMENTS?THERAPY ONGOING.
     Route: 040
     Dates: start: 20130129
  2. 5-FLUOROURACIL [Concomitant]
  3. LEUCOVORIN [Concomitant]

REACTIONS (4)
  - Burning sensation [Recovered/Resolved]
  - Back pain [Not Recovered/Not Resolved]
  - Constipation [Unknown]
  - Rash [Unknown]
